FAERS Safety Report 6531545-6 (Version None)
Quarter: 2010Q1

REPORT INFORMATION
  Report Type: 
  Country: None (occurrence: None)
  Receive Date: 20100107
  Receipt Date: 20100107
  Transmission Date: 20100710
  Serious: Yes (Other)
  Sender: FDA-Public Use
  Company Number: None

PATIENT
  Age: 78 Year
  Sex: Male
  Weight: 118.5 kg

DRUGS (1)
  1. WARFARIN [Suspect]
     Dosage: 5.7 MG EVERY DAY PO
     Route: 048
     Dates: start: 20090728

REACTIONS (7)
  - ABDOMINAL DISTENSION [None]
  - ANGIODYSPLASIA [None]
  - GASTRIC HAEMORRHAGE [None]
  - HAEMORRHOIDS [None]
  - MASS [None]
  - RECTAL HAEMORRHAGE [None]
  - THROMBOSIS [None]
